FAERS Safety Report 14610131 (Version 1)
Quarter: 2018Q1

REPORT INFORMATION
  Report Type: Spontaneous
  Country: US (occurrence: US)
  Receive Date: 20180307
  Receipt Date: 20180307
  Transmission Date: 20180509
  Serious: Yes (Other)
  Sender: FDA-Public Use
  Company Number: US-KOWA-18US000476

PATIENT
  Age: 58 Year
  Sex: Female

DRUGS (1)
  1. FENOFIBRATE. [Suspect]
     Active Substance: FENOFIBRATE
     Indication: HYPERLIPIDAEMIA

REACTIONS (8)
  - Beta globulin increased [Unknown]
  - Lichenoid keratosis [Not Recovered/Not Resolved]
  - Skin hyperpigmentation [Unknown]
  - Dry eye [Unknown]
  - Skin discolouration [Not Recovered/Not Resolved]
  - Protein total increased [Unknown]
  - Photosensitivity reaction [Unknown]
  - Dry skin [Unknown]
